FAERS Safety Report 4553834-7 (Version None)
Quarter: 2005Q1

REPORT INFORMATION
  Report Type: 
  Country: None (occurrence: None)
  Receive Date: 20050110
  Receipt Date: 20050110
  Transmission Date: 20050727
  Serious: Yes (Hospitalization)
  Sender: FDA-Public Use
  Company Number: None

PATIENT
  Sex: Female
  Weight: 104 kg

DRUGS (8)
  1. TAXOL [Suspect]
     Indication: BREAST CANCER
     Dosage: 80 MG/M2 Q WK X 16 WKS
     Dates: start: 20041019
  2. CARBOPLATIN [Suspect]
     Dosage: AUC 6, WKS 1,5,9,13
     Dates: start: 20041019
  3. ADVAIR/ALBUTEROL INHALER [Concomitant]
  4. PROZAC [Concomitant]
  5. ZOMIG [Concomitant]
  6. FIORICET [Concomitant]
  7. ATIVAN [Concomitant]
  8. PROCRIT [Concomitant]

REACTIONS (1)
  - CHEST DISCOMFORT [None]
